FAERS Safety Report 4914123-1 (Version None)
Quarter: 2006Q1

REPORT INFORMATION
  Report Type: 
  Country: None (occurrence: None)
  Receive Date: 20060213
  Receipt Date: 20060123
  Transmission Date: 20060701
  Serious: Yes (Other)
  Sender: FDA-Public Use
  Company Number: ERD2006A00006

PATIENT
  Age: 69 Year
  Sex: Male

DRUGS (5)
  1. PIOGLITAZONE HCL [Suspect]
     Indication: DIABETES MELLITUS NON-INSULIN-DEPENDENT
     Dosage: 45 MG
     Route: 048
     Dates: start: 20020328, end: 20030520
  2. ATENOLOL [Concomitant]
  3. PRAVASTATINE (PRAVASTATIN) [Concomitant]
  4. ACETYLSALICYLIC ACID SRT [Concomitant]
  5. BROMAZEPAM (BROMAZEPAM) [Concomitant]

REACTIONS (1)
  - BLADDER CANCER STAGE II [None]
